FAERS Safety Report 20883680 (Version 2)
Quarter: 2022Q3

REPORT INFORMATION
  Report Type: Spontaneous
  Country: US (occurrence: None)
  Receive Date: 20220527
  Receipt Date: 20220709
  Transmission Date: 20221027
  Serious: Yes (Other)
  Sender: FDA-Public Use
  Company Number: 2022A192946

PATIENT
  Sex: Female

DRUGS (1)
  1. IMFINZI [Suspect]
     Active Substance: DURVALUMAB
     Indication: Non-small cell lung cancer stage III
     Route: 042
     Dates: start: 20220422

REACTIONS (8)
  - Pneumonitis [Unknown]
  - Diabetes mellitus [Unknown]
  - Vision blurred [Unknown]
  - Oxygen saturation decreased [Recovering/Resolving]
  - Dyspnoea [Unknown]
  - Body temperature increased [Unknown]
  - Digestive enzyme abnormal [Unknown]
  - Weight increased [Unknown]
